FAERS Safety Report 5629535-0 (Version None)
Quarter: 2008Q1

REPORT INFORMATION
  Report Type: 
  Country: None (occurrence: None)
  Receive Date: 20080218
  Receipt Date: 20080206
  Transmission Date: 20080703
  Serious: Yes (Other)
  Sender: FDA-Public Use
  Company Number: US-ROCHE-546029

PATIENT
  Age: 22 Year
  Sex: Male
  Weight: 65.8 kg

DRUGS (3)
  1. KLONOPIN [Suspect]
     Dosage: DOSAGE: AS REQUIRED (PRN)
     Route: 065
     Dates: start: 20030101
  2. KLONOPIN [Suspect]
     Route: 065
  3. PROLIXIN [Suspect]
     Route: 065
     Dates: start: 19950101

REACTIONS (1)
  - DYSKINESIA [None]
